FAERS Safety Report 8281302-8 (Version None)
Quarter: 2012Q2

REPORT INFORMATION
  Report Type: 
  Country: None (occurrence: None)
  Receive Date: 20120413
  Receipt Date: 20120411
  Transmission Date: 20120825
  Serious: No
  Sender: FDA-Public Use
  Company Number: US-PFIZER INC-2012090641

PATIENT
  Sex: Female
  Weight: 74.83 kg

DRUGS (5)
  1. VALIUM [Concomitant]
     Indication: SLEEP DISORDER
  2. SYNTHROID [Concomitant]
     Indication: HYPOTHYROIDISM
     Dosage: 150 UG, UNK
  3. LYRICA [Suspect]
     Indication: NERVE INJURY
     Dosage: 150 MG, 3X/DAY
     Route: 048
     Dates: start: 20120101, end: 20120201
  4. LYRICA [Suspect]
     Dosage: 150 MG, 10X/DAY
     Route: 048
     Dates: start: 20120201, end: 20120401
  5. CLONIDINE [Concomitant]
     Indication: HOT FLUSH
     Dosage: 2 MG, UNK

REACTIONS (3)
  - DRUG ADMINISTRATION ERROR [None]
  - DRUG INEFFECTIVE [None]
  - PAIN [None]
